FAERS Safety Report 8934050 (Version 2)
Quarter: 2012Q4

REPORT INFORMATION
  Report Type: 
  Country: IT (occurrence: IT)
  Receive Date: 20121129
  Receipt Date: 20121206
  Transmission Date: 20130627
  Serious: Yes (Other)
  Sender: FDA-Public Use
  Company Number: IT-BRISTOL-MYERS SQUIBB COMPANY-17155110

PATIENT
  Age: 82 Year
  Sex: Male

DRUGS (4)
  1. COUMADIN TABS 5 MG [Suspect]
     Indication: PULMONARY EMBOLISM
     Route: 048
     Dates: start: 20080101, end: 20121102
  2. TRIATEC [Concomitant]
     Indication: HYPERTENSION
     Dosage: 2.5mg tabs
     Route: 048
  3. TACHIPIRINA [Concomitant]
  4. NORVASC [Concomitant]
     Dosage: 5mg tabs

REACTIONS (3)
  - Head injury [Not Recovered/Not Resolved]
  - Subdural hygroma [Not Recovered/Not Resolved]
  - Subdural haematoma [Not Recovered/Not Resolved]
